FAERS Safety Report 6732377-6 (Version None)
Quarter: 2010Q2

REPORT INFORMATION
  Report Type: 
  Country: None (occurrence: None)
  Receive Date: 20100519
  Receipt Date: 20100510
  Transmission Date: 20101027
  Serious: Yes (Other)
  Sender: FDA-Public Use
  Company Number: ES-ROCHE-702635

PATIENT
  Age: 51 Year
  Sex: Female

DRUGS (5)
  1. AVASTIN [Suspect]
     Dosage: FREQUENCY: ONCE, FORM: SOLUTION FOR INFUSION
     Route: 042
     Dates: start: 20100211
  2. HERCEPTIN [Suspect]
     Dosage: DAILY DOSE: UNKNOWN: EVERY CYCLE
     Route: 042
     Dates: start: 20070101
  3. TAXOTERE [Suspect]
     Dosage: FREQUENCY: ONCE.
     Route: 042
     Dates: start: 20100211, end: 20100211
  4. DEXAMETHASONE [Suspect]
     Dosage: FREQUENCY: ONCE
     Route: 042
     Dates: start: 20100211
  5. EMEND [Suspect]
     Dosage: DAILY
     Route: 048
     Dates: start: 20100211, end: 20100213

REACTIONS (1)
  - ULCERATIVE KERATITIS [None]
